FAERS Safety Report 10017831 (Version 1)
Quarter: 2014Q1

REPORT INFORMATION
  Report Type: Spontaneous
  Country: JP (occurrence: JP)
  Receive Date: 20140318
  Receipt Date: 20140318
  Transmission Date: 20141002
  Serious: Yes (Other)
  Sender: FDA-Public Use
  Company Number: JP-ASTELLAS-2014JP002334

PATIENT
  Age: 7 Year
  Sex: Male

DRUGS (3)
  1. PROGRAF [Suspect]
     Route: 065
  2. FLUDARABINE [Concomitant]
     Indication: PREMEDICATION
     Dosage: 150 MG/M2, UNKNOWN/D
     Route: 065
  3. L-PAM                              /00006401/ [Concomitant]
     Indication: PREMEDICATION
     Dosage: 40 MG/M2, UNKNOWN/D
     Route: 065

REACTIONS (2)
  - Drug ineffective [Unknown]
  - Graft versus host disease [Unknown]
